FAERS Safety Report 7159080-5 (Version None)
Quarter: 2010Q4

REPORT INFORMATION
  Report Type: 
  Country: None (occurrence: None)
  Receive Date: 20101214
  Receipt Date: 20100724
  Transmission Date: 20110411
  Serious: No
  Sender: FDA-Public Use
  Company Number: US-ASTRAZENECA-2010SE34903

PATIENT
  Age: 86 Year
  Sex: Female
  Weight: 47.6 kg

DRUGS (8)
  1. CRESTOR [Suspect]
     Indication: HYPERCHOLESTEROLAEMIA
     Route: 048
  2. CRESTOR [Suspect]
     Route: 048
     Dates: start: 20100721
  3. PLAVIX [Concomitant]
     Indication: CARDIAC DISORDER
  4. ASPIRIN [Concomitant]
     Indication: CARDIAC DISORDER
  5. COREG [Concomitant]
     Indication: CARDIAC DISORDER
  6. MECLIZINE [Concomitant]
     Indication: DIZZINESS
  7. NIFEDIPINE [Concomitant]
     Indication: HYPERTENSION
  8. AMIODARONE HCL [Concomitant]
     Indication: CARDIAC DISORDER

REACTIONS (4)
  - ABDOMINAL PAIN [None]
  - DIARRHOEA [None]
  - INCORRECT DOSE ADMINISTERED [None]
  - MYALGIA [None]
